FAERS Safety Report 5009094-6 (Version None)
Quarter: 2006Q2

REPORT INFORMATION
  Report Type: 
  Country: None (occurrence: None)
  Receive Date: 20060517
  Receipt Date: 20060505
  Transmission Date: 20061013
  Serious: Yes (Other)
  Sender: FDA-Public Use
  Company Number: 2006060175

PATIENT
  Age: 62 Year
  Sex: Male

DRUGS (12)
  1. TOLTERODINE TARTRATE [Suspect]
     Indication: URINARY INCONTINENCE
     Dosage: 4 MG (4 MG, 1 IN 1 D), ORAL
     Route: 048
     Dates: start: 20051112
  2. MADOPAR (BENSERAZIDE HYDROCHLORIDE, LEVODOPA [Suspect]
     Indication: PARKINSON'S DISEASE
     Dosage: 62.5 MG (62.5 MG, 1 IN 1 D), ORAL
     Route: 048
  3. MADOPAR DR (BENSERAZIDE HYDROCHLORIDE, LEVODOPA) [Suspect]
     Indication: PARKINSON'S DISEASE
     Dosage: SEE IMAGE, ORAL
     Route: 048
     Dates: end: 20060307
  4. MADOPAR DR (BENSERAZIDE HYDROCHLORIDE, LEVODOPA) [Suspect]
     Indication: PARKINSON'S DISEASE
     Dosage: SEE IMAGE, ORAL
     Route: 048
     Dates: start: 20060308
  5. REQUIP [Suspect]
     Indication: PARKINSON'S DISEASE
     Dosage: 8 MG (2 MG, 4 IN 1 D), ORAL
     Route: 048
  6. COMTAN [Suspect]
     Indication: PARKINSON'S DISEASE
     Dosage: 800 MG (200 MG, 4 IN 1 D), ORAL
     Route: 048
  7. SEROQUEL [Suspect]
     Indication: HALLUCINATION, VISUAL
     Dosage: SEE IMAGE, ORAL
     Route: 048
     Dates: end: 20060307
  8. SEROQUEL [Suspect]
     Indication: HALLUCINATION, VISUAL
     Dosage: SEE IMAGE, ORAL
     Route: 048
     Dates: start: 20060308
  9. CHLORALDURAT (CHLORAL HYDRATE) [Concomitant]
  10. LORAZEPAM [Concomitant]
  11. PROSCAR [Concomitant]
  12. HEPATODORON (FRAGARIA VESCA, VITIS VINIFERA) [Concomitant]

REACTIONS (3)
  - ANXIETY [None]
  - DRUG INTERACTION [None]
  - HALLUCINATION, VISUAL [None]
